FAERS Safety Report 17703740 (Version 1)
Quarter: 2020Q2

REPORT INFORMATION
  Report Type: Spontaneous
  Country: US (occurrence: US)
  Receive Date: 20200423
  Receipt Date: 20200423
  Transmission Date: 20200714
  Serious: Yes (Other)
  Sender: FDA-Public Use
  Company Number: None

PATIENT
  Age: 67 Year
  Sex: Male
  Weight: 91.35 kg

DRUGS (12)
  1. NORCO [Concomitant]
     Active Substance: ACETAMINOPHEN\HYDROCODONE BITARTRATE
  2. ASPIRIN. [Concomitant]
     Active Substance: ASPIRIN
  3. LOSARTAN. [Concomitant]
     Active Substance: LOSARTAN
  4. TUMS [Concomitant]
     Active Substance: CALCIUM CARBONATE
  5. BOSULIF [Suspect]
     Active Substance: BOSUTINIB MONOHYDRATE
     Indication: CHRONIC MYELOID LEUKAEMIA
     Route: 048
     Dates: start: 20200415
  6. METOCLOPRAMIDE. [Concomitant]
     Active Substance: METOCLOPRAMIDE
  7. GLIPIZIDE. [Concomitant]
     Active Substance: GLIPIZIDE
  8. XANAX [Concomitant]
     Active Substance: ALPRAZOLAM
  9. PEPCID [Concomitant]
     Active Substance: FAMOTIDINE
  10. PREDNISONE. [Concomitant]
     Active Substance: PREDNISONE
  11. MELATONIN [Concomitant]
     Active Substance: MELATONIN
  12. PROCRIT [Concomitant]
     Active Substance: ERYTHROPOIETIN

REACTIONS (4)
  - Peripheral swelling [None]
  - Abdominal discomfort [None]
  - Gastrooesophageal reflux disease [None]
  - Nausea [None]
